FAERS Safety Report 24694857 (Version 1)
Quarter: 2024Q4

REPORT INFORMATION
  Report Type: Spontaneous
  Country: JP (occurrence: JP)
  Receive Date: 20241204
  Receipt Date: 20241204
  Transmission Date: 20250115
  Serious: Yes (Other)
  Sender: UNITED THERAPEUTICS
  Company Number: JP-UNITED THERAPEUTICS-UNT-2024-036808

PATIENT
  Age: 73 Year
  Sex: Male

DRUGS (1)
  1. TYVASO [Suspect]
     Active Substance: TREPROSTINIL
     Indication: Pulmonary hypertension
     Dosage: UNK

REACTIONS (4)
  - Pulmonary hypertension [Unknown]
  - Interstitial lung disease [Unknown]
  - Haemodynamic instability [Unknown]
  - General physical health deterioration [Unknown]
